FAERS Safety Report 16380729 (Version 1)
Quarter: 2019Q2

REPORT INFORMATION
  Report Type: Spontaneous
  Country: US (occurrence: US)
  Receive Date: 20190601
  Receipt Date: 20190601
  Transmission Date: 20190711
  Serious: No
  Sender: FDA-Public Use
  Company Number: US-TEVA-2019-US-1048658

PATIENT
  Sex: Male

DRUGS (2)
  1. BUPRENORPHINE TEVA [Suspect]
     Active Substance: BUPRENORPHINE
     Indication: OSTEOCHONDROSIS
     Dosage: FORM STRENGTH: 20 MCG/HR.
     Route: 062
  2. BUPRENORPHINE TEVA [Suspect]
     Active Substance: BUPRENORPHINE
     Indication: SPINAL PAIN

REACTIONS (9)
  - Stress [Unknown]
  - Physical disability [Unknown]
  - Rash [Unknown]
  - Headache [Unknown]
  - Drug ineffective [Unknown]
  - Product substitution issue [Unknown]
  - Application site pruritus [Unknown]
  - Product adhesion issue [Unknown]
  - Product physical issue [Unknown]
